FAERS Safety Report 8909724 (Version 1)
Quarter: 2012Q4

REPORT INFORMATION
  Report Type: Spontaneous
  Country: US (occurrence: None)
  Receive Date: 20121109
  Receipt Date: 20121109
  Transmission Date: 20130627
  Serious: Yes (Death)
  Sender: FDA-Public Use
  Company Number: ALK-2012-000999

PATIENT
  Age: 30 Year
  Sex: Male

DRUGS (2)
  1. VIVITROL (VIVITROL_NDA) INJECTION, 380MG [Suspect]
     Indication: OPIOID TYPE DEPENDENCE
     Dosage: 380 mg, qmo, Intramuscular
     Route: 030
  2. XANAX [Concomitant]

REACTIONS (1)
  - Death [None]
